FAERS Safety Report 7827878-3 (Version None)
Quarter: 2011Q4

REPORT INFORMATION
  Report Type: 
  Country: None (occurrence: None)
  Receive Date: 20111020
  Receipt Date: 20111006
  Transmission Date: 20120403
  Serious: Yes (Other)
  Sender: FDA-Public Use
  Company Number: US-BAYER-2010-008861

PATIENT
  Age: 23 Year
  Sex: Female
  Weight: 80.726 kg

DRUGS (6)
  1. YASMIN [Suspect]
     Dosage: UNK
     Route: 048
     Dates: start: 20030201, end: 20060101
  2. YAZ [Suspect]
     Route: 048
  3. ESTRADIOL [Concomitant]
  4. NSAID'S [Concomitant]
  5. CLEOCIN T [Concomitant]
  6. PHENERGAN HCL [Concomitant]
     Dosage: UNK UNK, PRN

REACTIONS (6)
  - ABDOMINAL PAIN UPPER [None]
  - CHOLECYSTITIS CHRONIC [None]
  - BACK PAIN [None]
  - DISCOMFORT [None]
  - PAIN [None]
  - INJURY [None]
